FAERS Safety Report 6234268-6 (Version None)
Quarter: 2009Q2

REPORT INFORMATION
  Report Type: 
  Country: None (occurrence: None)
  Receive Date: 20090616
  Receipt Date: 20090616
  Transmission Date: 20091009
  Serious: Yes (Other)
  Sender: FDA-Public Use
  Company Number: None

PATIENT
  Age: 37 Year
  Sex: Female
  Weight: 80 kg

DRUGS (1)
  1. NIACIN [Suspect]
     Indication: STRESS
     Dosage: 500MG 1 TIME PO ONLY ONCE
     Route: 048

REACTIONS (5)
  - PARAESTHESIA [None]
  - PHARYNGEAL OEDEMA [None]
  - RESPIRATION ABNORMAL [None]
  - SCRATCH [None]
  - SKIN BURNING SENSATION [None]
